FAERS Safety Report 9223562 (Version 1)
Quarter: 2013Q2

REPORT INFORMATION
  Report Type: Spontaneous
  Country: CA (occurrence: CA)
  Receive Date: 20130410
  Receipt Date: 20130410
  Transmission Date: 20140414
  Serious: Yes (Other)
  Sender: FDA-Public Use
  Company Number: CA-GLAXOSMITHKLINE-A1018629A

PATIENT
  Age: 54 Year
  Sex: Male

DRUGS (7)
  1. VOTRIENT [Suspect]
     Indication: RENAL CANCER METASTATIC
     Dosage: 800MG PER DAY
     Route: 048
     Dates: start: 20120709, end: 20130402
  2. FRAGMIN [Concomitant]
  3. OXYCODONE [Concomitant]
  4. SYNTHROID [Concomitant]
  5. RABEPRAZOLE [Concomitant]
  6. STEMETIL [Concomitant]
  7. NARCOTIC ANALGESIC [Concomitant]

REACTIONS (3)
  - Palliative care [Unknown]
  - Malaise [Not Recovered/Not Resolved]
  - Condition aggravated [Not Recovered/Not Resolved]
